FAERS Safety Report 7627766-1 (Version None)
Quarter: 2011Q3

REPORT INFORMATION
  Report Type: 
  Country: None (occurrence: None)
  Receive Date: 20110721
  Receipt Date: 20110718
  Transmission Date: 20111222
  Serious: Yes (Death)
  Sender: FDA-Public Use
  Company Number: PHHY2011US56009

PATIENT
  Sex: Female
  Weight: 115 kg

DRUGS (1)
  1. EXJADE [Suspect]
     Dosage: 1500 MG, QD
     Route: 048
     Dates: start: 20090806

REACTIONS (1)
  - ACUTE MYELOID LEUKAEMIA [None]
